FAERS Safety Report 18000819 (Version 2)
Quarter: 2021Q2

REPORT INFORMATION
  Report Type: Spontaneous
  Country: CA (occurrence: CA)
  Receive Date: 20200709
  Receipt Date: 20210628
  Transmission Date: 20210717
  Serious: Yes (Hospitalization, Other)
  Sender: FDA-Public Use
  Company Number: CA-TEVA-2020-CA-1798083

PATIENT
  Age: 68 Year
  Sex: Female

DRUGS (18)
  1. MORPHINE [Concomitant]
     Active Substance: MORPHINE
  2. PROPRANOLOL [Concomitant]
     Active Substance: PROPRANOLOL HYDROCHLORIDE
  3. FLUTICASONE. [Concomitant]
     Active Substance: FLUTICASONE
  4. TYLENOL [Concomitant]
     Active Substance: ACETAMINOPHEN
  5. HYOSCINE [Concomitant]
     Active Substance: SCOPOLAMINE
  6. GABAPENTIN. [Concomitant]
     Active Substance: GABAPENTIN
  7. SITAGLIPTINA [SITAGLIPTIN] [Concomitant]
     Active Substance: SITAGLIPTIN
  8. VENTOLIN [Concomitant]
     Active Substance: ALBUTEROL SULFATE
  9. CLONIDINE. [Concomitant]
     Active Substance: CLONIDINE
  10. CYCLOBENZAPRINE. [Concomitant]
     Active Substance: CYCLOBENZAPRINE
  11. HYDROMORPHONE [Concomitant]
     Active Substance: HYDROMORPHONE
  12. MYRBETRIQ [Concomitant]
     Active Substance: MIRABEGRON
  13. PANTOPRAZOLE [Concomitant]
     Active Substance: PANTOPRAZOLE
  14. AMLODIPINE [Concomitant]
     Active Substance: AMLODIPINE BESYLATE
  15. LEVOTHYROXINE. [Concomitant]
     Active Substance: LEVOTHYROXINE
  16. AMLODIPINE [Suspect]
     Active Substance: AMLODIPINE BESYLATE
     Route: 048
  17. TEVA?FUROSEMIDE [Suspect]
     Active Substance: FUROSEMIDE
     Route: 048
  18. ANETHOLTRITHION [Concomitant]
     Active Substance: ANETHOLTRITHION

REACTIONS (1)
  - Acute kidney injury [Recovering/Resolving]
